FAERS Safety Report 9581858 (Version 1)
Quarter: 2013Q4

REPORT INFORMATION
  Report Type: Spontaneous
  Country: US (occurrence: US)
  Receive Date: 20131002
  Receipt Date: 20131002
  Transmission Date: 20140711
  Serious: No
  Sender: FDA-Public Use
  Company Number: US-PURDUE-USA-2012-0082025

PATIENT
  Sex: Female

DRUGS (1)
  1. BUTRANS [Suspect]
     Indication: PAIN
     Dosage: 10 MCG, Q1H
     Route: 062
     Dates: start: 201112

REACTIONS (9)
  - Application site scar [Recovering/Resolving]
  - Application site erosion [Recovering/Resolving]
  - Application site vesicles [Recovering/Resolving]
  - Wrong technique in drug usage process [Unknown]
  - Drug administered at inappropriate site [Recovering/Resolving]
  - Application site inflammation [Recovering/Resolving]
  - Application site irritation [Recovering/Resolving]
  - Drug effect increased [Recovering/Resolving]
  - Application site pruritus [Recovering/Resolving]
